FAERS Safety Report 11177518 (Version 1)
Quarter: 2015Q2

REPORT INFORMATION
  Report Type: Spontaneous
  Country: JP (occurrence: JP)
  Receive Date: 20150610
  Receipt Date: 20150610
  Transmission Date: 20150821
  Serious: Yes (Hospitalization)
  Sender: FDA-Public Use
  Company Number: JP-ACTAVIS-2015-11328

PATIENT
  Sex: Male
  Weight: 64 kg

DRUGS (15)
  1. URSO [Suspect]
     Active Substance: URSODIOL
     Indication: LIVER DISORDER
     Dosage: 200 MG, TID
     Route: 048
     Dates: start: 20141008, end: 20141105
  2. GOSHAJINKIGAN [Suspect]
     Active Substance: HERBALS
     Indication: NEUROPATHY PERIPHERAL
     Dosage: 1 DF, TID
     Route: 048
     Dates: start: 20131205, end: 20140819
  3. STIVARGA [Suspect]
     Active Substance: REGORAFENIB
     Indication: COLON CANCER
     Dosage: 80 DF, DAILY
     Route: 048
     Dates: start: 20140813, end: 20140909
  4. ALOSITOL [Suspect]
     Active Substance: ALLOPURINOL
     Indication: HYPERURICAEMIA
     Dosage: 100 MG, BID
     Route: 048
     Dates: start: 20140501, end: 20141002
  5. PARIET [Suspect]
     Active Substance: RABEPRAZOLE SODIUM
     Indication: GASTROOESOPHAGEAL REFLUX DISEASE
     Dosage: 10 DF, DAILY
     Route: 048
     Dates: start: 20131113, end: 20141009
  6. NEOPHAGEN /00518801/ [Suspect]
     Active Substance: CYSTEINE\GLYCINE\GLYCYRRHIZIN
     Indication: LIVER DISORDER
     Dosage: 20 ML, DAILY
     Route: 042
     Dates: start: 20141008, end: 20141008
  7. PREDNISOLONE. [Suspect]
     Active Substance: PREDNISOLONE
     Indication: LIVER DISORDER
     Dosage: 40 MG, DAILY
     Route: 048
     Dates: start: 20141014, end: 20141107
  8. PROMAC                             /01312301/ [Suspect]
     Active Substance: NITROFURANTOIN
     Indication: DYSGEUSIA
     Dosage: 75 DF, BID
     Route: 048
     Dates: start: 20130919, end: 20141002
  9. NEOPHAGEN                          /00518801/ [Suspect]
     Active Substance: CYSTEINE\GLYCINE\GLYCYRRHIZIN
     Dosage: 60 ML, DAILY
     Route: 042
     Dates: start: 20141009, end: 20141009
  10. URALYT /06402701/ [Suspect]
     Active Substance: POTASSIUM CITRATE\TRISODIUM CITRATE DIHYDRATE
     Indication: HYPERURICAEMIA
     Dosage: 2 DF, BID
     Route: 048
     Dates: end: 20141002
  11. ADALAT CRONO [Suspect]
     Active Substance: NIFEDIPINE
     Indication: HYPERTENSION
     Dosage: 20 DF, DAILY
     Route: 048
     Dates: end: 20141002
  12. MEVALOTIN [Suspect]
     Active Substance: PRAVASTATIN SODIUM
     Indication: DYSLIPIDAEMIA
     Dosage: 10 DF, DAILY
     Route: 048
     Dates: end: 20141002
  13. TANATRIL [Suspect]
     Active Substance: IMIDAPRIL
     Indication: HYPERTENSION
     Dosage: 5 MG, DAILY
     Route: 048
     Dates: end: 20141002
  14. NEOPHAGEN                          /00518801/ [Suspect]
     Active Substance: CYSTEINE\GLYCINE\GLYCYRRHIZIN
     Dosage: 100 ML, DAILY
     Route: 042
     Dates: start: 20141010, end: 20141107
  15. PREDNISOLONE. [Suspect]
     Active Substance: PREDNISOLONE
     Dosage: 20 MG, DAILY
     Route: 048
     Dates: start: 20141021, end: 20141107

REACTIONS (3)
  - Hepatitis acute [None]
  - Drug-induced liver injury [Unknown]
  - Renal impairment [None]
